FAERS Safety Report 7294004-1 (Version None)
Quarter: 2011Q1

REPORT INFORMATION
  Report Type: 
  Country: None (occurrence: None)
  Receive Date: 20110203
  Receipt Date: 20110118
  Transmission Date: 20110831
  Serious: Yes (Death)
  Sender: FDA-Public Use
  Company Number: B0695046A

PATIENT
  Age: 47 Year
  Sex: Female

DRUGS (6)
  1. VERAPAMIL [Suspect]
     Dosage: ORAL
     Route: 048
  2. BUPROPION HYDROCHLORIDE [Suspect]
     Dosage: ORAL
     Route: 048
  3. ALPRAZOLAM [Suspect]
     Dosage: ORAL
     Route: 048
  4. VENLAFAXINE HYDROCHLIORIDE (FORMULATION UNKNOWN) (GENERIC) (VENLAFAXIN [Suspect]
     Dosage: ORAL
     Route: 048
  5. TRANDOLAPRIL (FORMULATION UNKNOWN) (GENERIC) (TRANDOLAPRIL) [Suspect]
     Dosage: ORAL
     Route: 048
  6. ACE INHIBITOR (FORMULATION UNKNOWN) (GENERIC) (ACE INHIBITOR) [Suspect]
     Dosage: ORAL
     Route: 048

REACTIONS (1)
  - COMPLETED SUICIDE [None]
